FAERS Safety Report 4789318-0 (Version None)
Quarter: 2005Q3

REPORT INFORMATION
  Report Type: 
  Country: None (occurrence: None)
  Receive Date: 20050929
  Receipt Date: 20050805
  Transmission Date: 20060218
  Serious: No
  Sender: FDA-Public Use
  Company Number: 05P-163-0307690-00

PATIENT
  Age: 58 Year
  Sex: Female
  Weight: 109 kg

DRUGS (10)
  1. HUMIRA [Suspect]
     Indication: RHEUMATOID ARTHRITIS
     Dosage: 40 MG, 1 IN 2 WK, SUBCUTANEOUS
     Route: 058
     Dates: start: 20050601
  2. METHOTREXATE [Concomitant]
  3. FOLIC ACID [Concomitant]
  4. PREDNISONE [Concomitant]
  5. HYDROXYCHLOROQUINE SULFATE [Concomitant]
  6. DIOVAN [Concomitant]
  7. ATORVASTATIN [Concomitant]
  8. GLIBENCLAMIDE [Concomitant]
  9. HYDROCHLOROTHIAZIDE [Concomitant]
  10. VERAPAMIL [Concomitant]

REACTIONS (1)
  - INJECTION SITE HAEMORRHAGE [None]
